FAERS Safety Report 14929292 (Version 1)
Quarter: 2018Q2

REPORT INFORMATION
  Report Type: Spontaneous
  Country: US (occurrence: US)
  Receive Date: 20180504
  Receipt Date: 20180504
  Transmission Date: 20180711
  Serious: No
  Sender: FDA-Public Use
  Company Number: None

PATIENT
  Age: 61 Year
  Sex: Male

DRUGS (1)
  1. ENTECAVIR TAB [Suspect]
     Active Substance: ENTECAVIR

REACTIONS (3)
  - Product distribution issue [None]
  - Drug dose omission [None]
  - Confusional state [None]

NARRATIVE: CASE EVENT DATE: 20180501
